FAERS Safety Report 9500295 (Version 1)
Quarter: 2013Q3

REPORT INFORMATION
  Report Type: Spontaneous
  Country: US (occurrence: None)
  Receive Date: 20130903
  Receipt Date: 20130903
  Transmission Date: 20140515
  Serious: No
  Sender: FDA-Public Use
  Company Number: 2013-00121

PATIENT
  Sex: Female

DRUGS (1)
  1. ZICAM COLD REMEDY NASAL GEL [Suspect]
     Indication: NASOPHARYNGITIS

REACTIONS (2)
  - Hypogeusia [None]
  - Hyposmia [None]
